FAERS Safety Report 7489049-2 (Version None)
Quarter: 2011Q2

REPORT INFORMATION
  Report Type: 
  Country: None (occurrence: None)
  Receive Date: 20110518
  Receipt Date: 20110510
  Transmission Date: 20111010
  Serious: Yes (Other)
  Sender: FDA-Public Use
  Company Number: US-ELI_LILLY_AND_COMPANY-US201105003398

PATIENT
  Sex: Male

DRUGS (1)
  1. HUMALOG MIX 75/25 [Suspect]
     Indication: DIABETES MELLITUS
     Dosage: 50 U, BID
     Dates: start: 19930101

REACTIONS (3)
  - EYE HAEMORRHAGE [None]
  - BLOOD GLUCOSE INCREASED [None]
  - VISUAL IMPAIRMENT [None]
